FAERS Safety Report 26008696 (Version 1)
Quarter: 2025Q4

REPORT INFORMATION
  Report Type: Report from Study
  Country: CA (occurrence: CA)
  Receive Date: 20251106
  Receipt Date: 20251106
  Transmission Date: 20260117
  Serious: Yes (Other)
  Sender: ABBVIE
  Company Number: CA-JNJFOC-20251036851

PATIENT
  Sex: Male

DRUGS (1)
  1. IMBRUVICA [Suspect]
     Active Substance: IBRUTINIB
     Indication: Waldenstrom^s macroglobulinaemia
     Dosage: 3 TABLETS
     Route: 048
     Dates: start: 20230215

REACTIONS (2)
  - Ingrowing nail [Recovered/Resolved]
  - Nail bed bleeding [Recovered/Resolved]
